FAERS Safety Report 11419727 (Version 1)
Quarter: 2015Q3

REPORT INFORMATION
  Report Type: Report from Study
  Country: US (occurrence: US)
  Receive Date: 20150826
  Receipt Date: 20150826
  Transmission Date: 20151125
  Serious: Yes (Hospitalization)
  Sender: FDA-Public Use
  Company Number: US-UNITED THERAPEUTICS-REM_00059_2004

PATIENT
  Age: 47 Year
  Sex: Female
  Weight: 56 kg

DRUGS (10)
  1. LOPRESSOR [Concomitant]
     Active Substance: METOPROLOL TARTRATE
  2. WARFARIN [Concomitant]
     Active Substance: WARFARIN
     Indication: HYPERCOAGULATION
     Route: 048
     Dates: start: 19981022
  3. COLACE [Concomitant]
     Active Substance: DOCUSATE SODIUM
     Route: 048
  4. BLINDED TREPROSTINIL SODIUM (SQ/IV) [Suspect]
     Active Substance: TREPROSTINIL SODIUM
     Indication: PERIPHERAL ISCHAEMIA
     Dosage: 12.5 NG/KG/MIN
     Route: 058
     Dates: start: 20040409, end: 20040509
  5. PLACEBO [Suspect]
     Active Substance: UNSPECIFIED INGREDIENT
     Indication: PERIPHERAL ISCHAEMIA
     Dosage: 12.5 NG/KG/MIN
     Route: 058
     Dates: start: 20040409, end: 20040509
  6. LOVENOX [Concomitant]
     Active Substance: ENOXAPARIN SODIUM
     Indication: HYPERCOAGULATION
     Dosage: 120 MG
     Route: 058
  7. KEFLEX [Concomitant]
     Active Substance: CEPHALEXIN
     Route: 048
  8. PLACEBO [Suspect]
     Active Substance: UNSPECIFIED INGREDIENT
     Indication: PERIPHERAL ISCHAEMIA
     Dosage: 12.5 NG/KG/MIN
     Route: 058
     Dates: start: 20040409, end: 20040509
  9. METHADONE [Concomitant]
     Active Substance: METHADONE HYDROCHLORIDE
     Route: 048
  10. ROXICODONE [Concomitant]
     Active Substance: OXYCODONE HYDROCHLORIDE
     Route: 048

REACTIONS (2)
  - Crohn^s disease [Recovered/Resolved]
  - Diarrhoea [Recovered/Resolved]

NARRATIVE: CASE EVENT DATE: 20040509
